FAERS Safety Report 22705690 (Version 2)
Quarter: 2023Q4

REPORT INFORMATION
  Report Type: Spontaneous
  Country: CZ (occurrence: CZ)
  Receive Date: 20230714
  Receipt Date: 20231012
  Transmission Date: 20240109
  Serious: No
  Sender: FDA-Public Use
  Company Number: CZ-002147023-NVSC2023CZ155888

PATIENT
  Sex: Female

DRUGS (4)
  1. COSENTYX [Suspect]
     Active Substance: SECUKINUMAB
     Indication: Psoriasis
     Dosage: 300 MG, QMO (WEEKS 0,1,2 ,3,4)
     Route: 065
     Dates: start: 20190402, end: 20230314
  2. COSENTYX [Suspect]
     Active Substance: SECUKINUMAB
     Dosage: 300 MG, Q2W
     Route: 065
     Dates: start: 20230314
  3. ATORVASTATIN [Concomitant]
     Active Substance: ATORVASTATIN
     Indication: Product used for unknown indication
     Dosage: 20 MG, QD
     Route: 065
  4. PURINOL [Concomitant]
     Indication: Product used for unknown indication
     Dosage: 100 MG, QD
     Route: 065

REACTIONS (4)
  - Psoriasis [Unknown]
  - Condition aggravated [Unknown]
  - Oral candidiasis [Unknown]
  - Oral pain [Unknown]

NARRATIVE: CASE EVENT DATE: 20230101
